FAERS Safety Report 17392059 (Version 1)
Quarter: 2020Q1

REPORT INFORMATION
  Report Type: Spontaneous
  Country: JP (occurrence: JP)
  Receive Date: 20200207
  Receipt Date: 20200207
  Transmission Date: 20200409
  Serious: Yes (Other)
  Sender: FDA-Public Use
  Company Number: NVSJ2020JP001231

PATIENT
  Age: 48 Year
  Sex: Female

DRUGS (3)
  1. CYCLOSPORINE. [Suspect]
     Active Substance: CYCLOSPORINE
     Indication: DERMATOMYOSITIS
     Dosage: UNK
     Route: 065
  2. CYCLOSPORINE. [Suspect]
     Active Substance: CYCLOSPORINE
     Dosage: UNK
     Route: 065
  3. PREDNISOLONE. [Concomitant]
     Active Substance: PREDNISOLONE
     Indication: DERMATOMYOSITIS
     Dosage: 30 MG
     Route: 065

REACTIONS (7)
  - Pancreatic neoplasm [Unknown]
  - Lymphoproliferative disorder [Unknown]
  - Liver disorder [Unknown]
  - Neoplasm skin [Unknown]
  - Benign ovarian tumour [Unknown]
  - Large intestine benign neoplasm [Unknown]
  - Product use in unapproved indication [Unknown]
